FAERS Safety Report 21298991 (Version 1)
Quarter: 2022Q3

REPORT INFORMATION
  Report Type: Spontaneous
  Country: US (occurrence: None)
  Receive Date: 20220905
  Receipt Date: 20220905
  Transmission Date: 20221027
  Serious: No
  Sender: FDA-Public Use
  Company Number: None

PATIENT
  Age: 51 Year
  Sex: Female
  Weight: 92.25 kg

DRUGS (15)
  1. DEXTROAMPHET SACCHARAT, AMPHET ASPARTATE, DEXTROAMPHET SULFATE AND AMP [Suspect]
     Active Substance: AMPHETAMINE ASPARTATE\AMPHETAMINE SULFATE\DEXTROAMPHETAMINE SACCHARATE\DEXTROAMPHETAMINE SULFATE
     Indication: Attention deficit hyperactivity disorder
     Dosage: OTHER QUANTITY : 1 TABLET(S);?FREQUENCY : TWICE A DAY;?
     Route: 048
     Dates: start: 20220401, end: 20220815
  2. BESREMI [Concomitant]
  3. VYVANSE [Concomitant]
  4. ZOLPIDEM [Concomitant]
  5. TRAZODONE [Concomitant]
  6. RIZATRIPTAN [Concomitant]
     Active Substance: RIZATRIPTAN
  7. Emgality [Concomitant]
  8. PANTOPRAZ [Concomitant]
  9. VIT D [Concomitant]
  10. CALCIUM [Concomitant]
  11. MAGNESIUM [Concomitant]
  12. TYLENOL [Concomitant]
  13. IBUPROFEN [Concomitant]
  14. ALEVE [Concomitant]
  15. BETA ALANINE [Concomitant]

REACTIONS (8)
  - Drug ineffective [None]
  - Feeling abnormal [None]
  - Apathy [None]
  - Disturbance in attention [None]
  - Impaired work ability [None]
  - Frustration tolerance decreased [None]
  - Manufacturing issue [None]
  - Product quality issue [None]

NARRATIVE: CASE EVENT DATE: 20220401
